FAERS Safety Report 5270951-7 (Version None)
Quarter: 2007Q1

REPORT INFORMATION
  Report Type: 
  Country: None (occurrence: None)
  Receive Date: 20070321
  Receipt Date: 20070316
  Transmission Date: 20070707
  Serious: Yes (Death, Hospitalization)
  Sender: FDA-Public Use
  Company Number: GB-AVENTIS-200712315GDDC

PATIENT
  Age: 39 Year
  Sex: Female

DRUGS (3)
  1. DDAVP [Suspect]
     Indication: DIABETES INSIPIDUS
  2. GROWTH HORMONE [Concomitant]
  3. LEVOTHYROXINE SODIUM [Concomitant]

REACTIONS (2)
  - DEMYELINATION [None]
  - HYPONATRAEMIA [None]
